FAERS Safety Report 5534423-4 (Version None)
Quarter: 2007Q4

REPORT INFORMATION
  Report Type: 
  Country: None (occurrence: None)
  Receive Date: 20071205
  Receipt Date: 20071120
  Transmission Date: 20080405
  Serious: Yes (Other)
  Sender: FDA-Public Use
  Company Number: JP-ROCHE-533083

PATIENT
  Age: 72 Year
  Sex: Male

DRUGS (1)
  1. PANALDINE [Suspect]
     Indication: PERCUTANEOUS CORONARY INTERVENTION
     Route: 048
     Dates: start: 20071012

REACTIONS (2)
  - DYSGEUSIA [None]
  - LOSS OF CONSCIOUSNESS [None]
